FAERS Safety Report 8434156-0 (Version None)
Quarter: 2012Q2

REPORT INFORMATION
  Report Type: 
  Country: None (occurrence: None)
  Receive Date: 20120613
  Receipt Date: 20120605
  Transmission Date: 20120825
  Serious: Yes (Death, Hospitalization)
  Sender: FDA-Public Use
  Company Number: DE-ACTELION-A-US2012-66556

PATIENT

DRUGS (4)
  1. DIURETICS [Concomitant]
  2. VENTAVIS [Suspect]
     Indication: PULMONARY ARTERIAL HYPERTENSION
     Dosage: 2.5 ?G, Q4HR
     Route: 055
     Dates: start: 20101028
  3. REVATIO [Concomitant]
  4. TRACLEER [Concomitant]
     Indication: PULMONARY ARTERIAL HYPERTENSION

REACTIONS (2)
  - DEATH [None]
  - OEDEMA PERIPHERAL [None]
